FAERS Safety Report 8499043-0 (Version None)
Quarter: 2012Q3

REPORT INFORMATION
  Report Type: 
  Country: None (occurrence: None)
  Receive Date: 20120710
  Receipt Date: 20120627
  Transmission Date: 20120928
  Serious: Yes (Hospitalization)
  Sender: FDA-Public Use
  Company Number: IL-009507513-1206USA04440

PATIENT

DRUGS (1)
  1. METFORMIN HYDROCHLORIDE [Suspect]
     Dosage: UNK MG, UNK
     Route: 048
     Dates: start: 20120426

REACTIONS (4)
  - NAUSEA [None]
  - MALAISE [None]
  - OEDEMA [None]
  - COUGH [None]
